FAERS Safety Report 19352341 (Version 1)
Quarter: 2021Q2

REPORT INFORMATION
  Report Type: Spontaneous
  Country: US (occurrence: US)
  Receive Date: 20210601
  Receipt Date: 20210601
  Transmission Date: 20210717
  Serious: Yes (Life-Threatening, Hospitalization, Other)
  Sender: FDA-Public Use
  Company Number: US-GLAXOSMITHKLINE-US2021GSK116189

PATIENT
  Age: 23 Year
  Sex: Male

DRUGS (2)
  1. CITALOPRAM [Suspect]
     Active Substance: CITALOPRAM HYDROBROMIDE
     Indication: PRODUCT USED FOR UNKNOWN INDICATION
     Dosage: UNK
  2. BUPROPION. [Suspect]
     Active Substance: BUPROPION
     Indication: PRODUCT USED FOR UNKNOWN INDICATION
     Dosage: UNK

REACTIONS (10)
  - Overdose [Unknown]
  - Circulatory collapse [Recovered/Resolved]
  - Vasoplegia syndrome [Recovered/Resolved]
  - Cardiac arrest [Recovered/Resolved]
  - Cardiogenic shock [Recovered/Resolved]
  - Seizure [Recovered/Resolved]
  - Acidosis [Recovered/Resolved]
  - Distributive shock [Recovered/Resolved]
  - Shock [Recovered/Resolved]
  - Tachyarrhythmia [Unknown]
